FAERS Safety Report 10168228 (Version 1)
Quarter: 2014Q2

REPORT INFORMATION
  Report Type: Spontaneous
  Country: IN (occurrence: IN)
  Receive Date: 20140512
  Receipt Date: 20140512
  Transmission Date: 20141212
  Serious: Yes (Hospitalization)
  Sender: FDA-Public Use
  Company Number: PHHY2014IN056425

PATIENT
  Age: 4 Year
  Sex: Male

DRUGS (4)
  1. RIFAMPICIN [Suspect]
     Indication: MENINGITIS TUBERCULOUS
     Dosage: 10 MG/KG, UNK
     Route: 048
  2. ISONIAZID [Suspect]
     Indication: MENINGITIS TUBERCULOUS
     Dosage: 5 MG/KG, UNK
     Route: 048
  3. PYRAZINAMIDE [Suspect]
     Indication: MENINGITIS TUBERCULOUS
     Dosage: 25 MG/KG, UNK
     Route: 048
  4. ETHAMBUTOL [Suspect]
     Indication: MENINGITIS TUBERCULOUS
     Dosage: 15 MG/KG, UNK
     Route: 048

REACTIONS (7)
  - Arachnoiditis [Recovered/Resolved]
  - Blindness [Recovered/Resolved]
  - Mydriasis [Recovered/Resolved]
  - Cranial nerve disorder [Recovered/Resolved]
  - Optic atrophy [Recovered/Resolved]
  - Paradoxical drug reaction [Recovered/Resolved]
  - Pupillary reflex impaired [Recovered/Resolved]
